FAERS Safety Report 25955466 (Version 2)
Quarter: 2025Q4

REPORT INFORMATION
  Report Type: Spontaneous
  Country: EU (occurrence: EU)
  Receive Date: 20251024
  Receipt Date: 20251031
  Transmission Date: 20260117
  Serious: Yes (Life-Threatening, Hospitalization, Other)
  Sender: AUROBINDO
  Company Number: EU-AUROBINDO-AUR-APL-2025-052644

PATIENT
  Age: 4 Year
  Sex: Female
  Weight: 18 kg

DRUGS (1)
  1. BISOPROLOL FUMARATE\HYDROCHLOROTHIAZIDE [Suspect]
     Active Substance: BISOPROLOL FUMARATE\HYDROCHLOROTHIAZIDE
     Indication: Product used for unknown indication
     Dosage: UNK (THE PARENTS REPORTED THAT 10 PILLS WERE MISSING FROM THE  BLISTER PACK, INDICATING A POTENTIAL
     Route: 048

REACTIONS (10)
  - Bone metabolism disorder [Recovered/Resolved]
  - Myocardial injury [Recovered/Resolved]
  - Blood creatinine decreased [Recovered/Resolved]
  - Blood phosphorus decreased [Recovered/Resolved]
  - Blood lactate dehydrogenase increased [Recovered/Resolved]
  - Accidental exposure to product by child [Recovered/Resolved]
  - Accidental overdose [Recovered/Resolved]
  - Cardiotoxicity [Unknown]
  - Overdose [Unknown]
  - Accidental exposure to product [Unknown]
